FAERS Safety Report 10285155 (Version 1)
Quarter: 2014Q3

REPORT INFORMATION
  Report Type: Spontaneous
  Country: US (occurrence: US)
  Receive Date: 20140708
  Receipt Date: 20140708
  Transmission Date: 20150326
  Serious: Yes (Other)
  Sender: FDA-Public Use
  Company Number: US-SA-2014SA085222

PATIENT
  Age: 64 Year
  Sex: Female

DRUGS (3)
  1. AVONEX [Concomitant]
     Active Substance: INTERFERON BETA-1A
     Route: 030
     Dates: end: 20010101
  2. AUBAGIO [Suspect]
     Active Substance: TERIFLUNOMIDE
     Indication: PRODUCT USED FOR UNKNOWN INDICATION
     Route: 065
  3. AVONEX [Concomitant]
     Active Substance: INTERFERON BETA-1A
     Route: 030

REACTIONS (4)
  - Heart rate increased [Recovered/Resolved]
  - Feeling of body temperature change [Not Recovered/Not Resolved]
  - Loss of consciousness [Recovered/Resolved]
  - Arteritis [Not Recovered/Not Resolved]

NARRATIVE: CASE EVENT DATE: 201311
